FAERS Safety Report 6304923-8 (Version None)
Quarter: 2009Q3

REPORT INFORMATION
  Report Type: 
  Country: None (occurrence: None)
  Receive Date: 20090807
  Receipt Date: 20090728
  Transmission Date: 20100115
  Serious: Yes (Hospitalization)
  Sender: FDA-Public Use
  Company Number: 20090340 /

PATIENT
  Age: 50 Year
  Sex: Female

DRUGS (1)
  1. CYANOCOBALAMIN INJ [Suspect]
     Dosage: CC
     Dates: start: 20090526, end: 20090627

REACTIONS (3)
  - RASH [None]
  - RENAL FAILURE ACUTE [None]
  - TUBULOINTERSTITIAL NEPHRITIS [None]
